FAERS Safety Report 6417280-3 (Version None)
Quarter: 2009Q4

REPORT INFORMATION
  Report Type: 
  Country: None (occurrence: None)
  Receive Date: 20091028
  Receipt Date: 20091015
  Transmission Date: 20100525
  Serious: Yes (Hospitalization)
  Sender: FDA-Public Use
  Company Number: PHHO2008DE14356

PATIENT
  Sex: Female
  Weight: 67 kg

DRUGS (4)
  1. RAD 666 RAD+TAB [Suspect]
     Indication: NON-SMALL CELL LUNG CANCER
     Dosage: 30MG ONCE WEEKLY
     Route: 048
     Dates: start: 20080825, end: 20081124
  2. BEVACIZUMAB [Suspect]
     Indication: NON-SMALL CELL LUNG CANCER
  3. CARBOPLATIN [Concomitant]
  4. PACLITAXEL [Concomitant]

REACTIONS (5)
  - ASCITES [None]
  - COLITIS [None]
  - DIARRHOEA [None]
  - INTESTINAL OPERATION [None]
  - LARGE INTESTINE PERFORATION [None]
